FAERS Safety Report 5588234-4 (Version None)
Quarter: 2008Q1

REPORT INFORMATION
  Report Type: 
  Country: None (occurrence: None)
  Receive Date: 20080111
  Receipt Date: 20071230
  Transmission Date: 20080703
  Serious: Yes (Other)
  Sender: FDA-Public Use
  Company Number: US-BAYER-200810021BCC

PATIENT
  Age: 12 Year
  Sex: Female
  Weight: 48 kg

DRUGS (4)
  1. RID SHAMPOO [Suspect]
     Indication: LICE INFESTATION
     Route: 061
     Dates: start: 20071230
  2. RID COMB OUT GEL [Suspect]
     Indication: LICE INFESTATION
     Route: 061
     Dates: start: 20071230
  3. RID HOME LICE CONTROL SPRAY [Suspect]
     Indication: LICE INFESTATION
     Dates: start: 20071230
  4. RID COMB [Suspect]
     Indication: LICE INFESTATION
     Route: 061
     Dates: start: 20071230

REACTIONS (6)
  - ABDOMINAL PAIN UPPER [None]
  - DYSPNOEA [None]
  - HYPERSENSITIVITY [None]
  - OBSTRUCTIVE AIRWAYS DISORDER [None]
  - PARAESTHESIA ORAL [None]
  - PHARYNGEAL OEDEMA [None]
